FAERS Safety Report 19039250 (Version 1)
Quarter: 2021Q1

REPORT INFORMATION
  Report Type: Spontaneous
  Country: GB (occurrence: GB)
  Receive Date: 20210322
  Receipt Date: 20210322
  Transmission Date: 20210420
  Serious: Yes (Other)
  Sender: FDA-Public Use
  Company Number: GB-ACCORD-220019

PATIENT
  Age: 55 Year
  Sex: Female

DRUGS (55)
  1. PERTUZUMAB. [Suspect]
     Active Substance: PERTUZUMAB
     Indication: BREAST CANCER
     Dosage: 840 MILLIGRAM, Q3WK
     Route: 042
     Dates: start: 20170524, end: 20170524
  2. METRONIDAZOLE. [Concomitant]
     Active Substance: METRONIDAZOLE
     Indication: ABDOMINAL PAIN UPPER
     Route: 042
     Dates: start: 20200630, end: 20200709
  3. AMIKACIN. [Concomitant]
     Active Substance: AMIKACIN
     Indication: BILIARY SEPSIS
     Route: 042
     Dates: start: 20200504, end: 20200504
  4. HALAVEN [Concomitant]
     Active Substance: ERIBULIN MESYLATE
     Indication: BREAST CANCER
     Dosage: 1.85 MILLIGRAM
     Route: 042
     Dates: start: 20200611, end: 20200820
  5. MEROPENEM. [Concomitant]
     Active Substance: MEROPENEM
     Indication: PYREXIA
  6. CHLORPHENAMINE/CHLORPHENAMINE MALEATE/CHLORPHENAMINE RESINATE/CHLORPHENAMINE TANNATE [Concomitant]
     Active Substance: CHLORPHENIRAMINE
     Dosage: UNK, 0.25 DAY
     Route: 048
     Dates: start: 20170526
  7. PACLITAXEL/PACLITAXEL LIPOSOME [Suspect]
     Active Substance: PACLITAXEL
     Indication: PRODUCT USED FOR UNKNOWN INDICATION
     Dosage: 450 MILLIGRAM, Q3WK
     Route: 042
     Dates: start: 20170705
  8. DOCETAXEL. [Suspect]
     Active Substance: DOCETAXEL
     Indication: BREAST CANCER
     Dosage: 130 MILLIGRAM, Q3WK
     Route: 042
     Dates: start: 20170525, end: 20170525
  9. CEFUROXIME. [Concomitant]
     Active Substance: CEFUROXIME
     Indication: BILIARY SEPSIS
     Dosage: 250 MILLIGRAM, 0.5 DAY
     Route: 048
     Dates: start: 20200925, end: 20201009
  10. ERTAPENEM/ERTAPENEM SODIUM [Concomitant]
     Active Substance: ERTAPENEM
     Indication: BILIARY SEPSIS
     Dosage: 1 GRAM
     Route: 042
     Dates: start: 20200501, end: 20200502
  11. TINZAPARIN/TINZAPARIN SODIUM [Concomitant]
     Active Substance: TINZAPARIN SODIUM
     Indication: THROMBOSIS
     Dosage: UNK UNK, QD
     Route: 058
     Dates: start: 20190916
  12. MEROPENEM. [Concomitant]
     Active Substance: MEROPENEM
     Indication: ABDOMINAL PAIN
     Dosage: UNK
     Route: 042
     Dates: start: 20201130
  13. PARACETAMOL [Concomitant]
     Active Substance: ACETAMINOPHEN
     Dosage: UNK, AS PER REQUIRED.
     Route: 048
     Dates: start: 20170525
  14. DOMPERIDONE [Concomitant]
     Active Substance: DOMPERIDONE
     Dosage: 10 MILLIGRAM, 0.33 DAY
     Route: 048
     Dates: start: 20170523
  15. LOPERAMIDE [Concomitant]
     Active Substance: LOPERAMIDE
     Dosage: UNK,1 AS PER REQUIRED.
     Route: 048
     Dates: start: 20170613
  16. TRASTUZUMAB. [Suspect]
     Active Substance: TRASTUZUMAB
     Indication: BREAST CANCER
     Dosage: 160 MILLIGRAM, Q3WK
     Route: 042
     Dates: start: 20190829, end: 20200326
  17. VANCOMYCIN [Concomitant]
     Active Substance: VANCOMYCIN
     Indication: CLOSTRIDIUM DIFFICILE INFECTION
     Dosage: 125 MILLIGRAM, 0.25 DAY
     Route: 048
     Dates: start: 20201030
  18. IKERVIS [Concomitant]
     Active Substance: CYCLOSPORINE
     Indication: BLEPHARITIS
     Route: 047
     Dates: start: 201708
  19. SANDO?K [Concomitant]
     Dosage: UNK, 0.5 DAY
     Route: 048
     Dates: start: 20170525
  20. CLOBETASOL [Concomitant]
     Active Substance: CLOBETASOL
     Dosage: UNK, 0.5 DAY
     Route: 061
     Dates: start: 20170210
  21. PERTUZUMAB. [Suspect]
     Active Substance: PERTUZUMAB
     Indication: PRODUCT USED FOR UNKNOWN INDICATION
     Dosage: 420 MILLIGRAM, Q3WK
     Route: 042
     Dates: start: 20170614, end: 20190327
  22. TRASTUZUMAB. [Suspect]
     Active Substance: TRASTUZUMAB
     Indication: BREAST CANCER
     Dosage: 525 MILLIGRAM, Q3WK, LOADING DOSE
     Route: 042
     Dates: start: 20170524, end: 20170524
  23. TRANEXAMIC ACID. [Concomitant]
     Active Substance: TRANEXAMIC ACID
     Indication: DUODENAL ULCER
     Dosage: 1 GRAM
     Route: 048
     Dates: start: 20201112
  24. CHLORHEXIDINE [Concomitant]
     Active Substance: CHLORHEXIDINE
     Dosage: UNK, 0.25 DAY
     Route: 061
     Dates: start: 20170525
  25. DIETHANOLAMINE FUSIDATE/FUSIDATE SODIUM/FUSIDIC ACID [Concomitant]
     Active Substance: DIETHANOLAMINE FUSIDATE\FUSIDATE SODIUM\FUSIDIC ACID
     Dates: start: 201905
  26. PACLITAXEL/PACLITAXEL LIPOSOME [Suspect]
     Active Substance: PACLITAXEL
     Indication: PRODUCT USED FOR UNKNOWN INDICATION
     Dosage: 450 MILLIGRAM, Q3WK
     Route: 042
     Dates: start: 20170614, end: 20170614
  27. TRASTUZUMAB. [Suspect]
     Active Substance: TRASTUZUMAB
     Indication: PRODUCT USED FOR UNKNOWN INDICATION
     Dosage: 200 MILLIGRAM, Q3WK
     Route: 042
     Dates: start: 20190627, end: 20190718
  28. PACLITAXEL/PACLITAXEL LIPOSOME [Suspect]
     Active Substance: PACLITAXEL
     Indication: PRODUCT USED FOR UNKNOWN INDICATION
     Dosage: 375 MILLIGRAM, Q3WK
     Route: 042
     Dates: start: 20170705, end: 20170726
  29. FLUCLOXACILLIN [Concomitant]
     Active Substance: FLUCLOXACILLIN
     Indication: FOLLICULITIS
     Route: 048
     Dates: start: 20190122
  30. TRASTUZUMAB. [Suspect]
     Active Substance: TRASTUZUMAB
     Indication: PRODUCT USED FOR UNKNOWN INDICATION
     Dosage: 400 MILLIGRAM, Q3WK
     Route: 042
     Dates: start: 20170614, end: 20180425
  31. AZTREONAM. [Concomitant]
     Active Substance: AZTREONAM
     Indication: BILIARY SEPSIS
     Dosage: UNK
     Route: 042
     Dates: start: 20201028
  32. LANSOPRAZOLE. [Concomitant]
     Active Substance: LANSOPRAZOLE
     Indication: GASTRITIS
     Dosage: UNK UNK, QD
     Route: 048
     Dates: start: 20190730, end: 20190730
  33. OMEPRAZOLE. [Concomitant]
     Active Substance: OMEPRAZOLE
     Indication: DUODENAL ULCER
     Dosage: 40 MILLIGRAM, 0.5 DAY
     Route: 048
     Dates: start: 20201113
  34. ZOLEDRONIC ACID [Concomitant]
     Active Substance: ZOLEDRONIC ACID
     Dosage: 4 MILLIGRAM, Q4WK, ONCE IN EVERY 3 TO4 WEEKS.
     Route: 042
     Dates: start: 20170525
  35. AZTREONAM. [Concomitant]
     Active Substance: AZTREONAM
     Dosage: UNK
     Route: 042
     Dates: start: 20200925, end: 20200925
  36. APIXABAN [Concomitant]
     Active Substance: APIXABAN
  37. CALCICHEW D3 FORTE [Concomitant]
     Active Substance: CALCIUM\CHOLECALCIFEROL
     Dosage: UNK, 0.33 DAY
     Route: 048
     Dates: start: 20170525
  38. MEROPENEM. [Concomitant]
     Active Substance: MEROPENEM
     Indication: BILIARY SEPSIS
     Dosage: 2 GRAM, 0.33 DAY
     Route: 042
     Dates: start: 20200502, end: 20200515
  39. TEICOPLANIN [Concomitant]
     Active Substance: TEICOPLANIN
     Dosage: UNK
     Route: 042
     Dates: start: 20200502, end: 20200515
  40. TEICOPLANIN [Concomitant]
     Active Substance: TEICOPLANIN
     Indication: BILIARY SEPSIS
     Dosage: UNK
     Route: 042
     Dates: start: 20200925, end: 20200925
  41. PACLITAXEL/PACLITAXEL LIPOSOME [Suspect]
     Active Substance: PACLITAXEL
     Indication: PRODUCT USED FOR UNKNOWN INDICATION
     Dosage: 300 MILLIGRAM, Q3WK
     Route: 042
     Dates: start: 20170816, end: 20170906
  42. TRASTUZUMAB. [Suspect]
     Active Substance: TRASTUZUMAB
     Indication: PRODUCT USED FOR UNKNOWN INDICATION
     Dosage: 378 MILLIGRAM, Q3WK
     Route: 042
     Dates: start: 20180516, end: 20190327
  43. PACLITAXEL/PACLITAXEL LIPOSOME [Suspect]
     Active Substance: PACLITAXEL
     Indication: PRODUCT USED FOR UNKNOWN INDICATION
     Dosage: 375 MILLIGRAM, Q3WK
     Route: 042
     Dates: start: 20170705, end: 20170726
  44. CETIRIZINE [Concomitant]
     Active Substance: CETIRIZINE HYDROCHLORIDE
     Indication: PUSTULE
     Dosage: UNK UNK, QD
     Route: 048
     Dates: start: 20190313
  45. NERATINIB [Concomitant]
     Active Substance: NERATINIB
     Dosage: 240 MILLIGRAM, QD
     Route: 048
     Dates: start: 20200919, end: 20201104
  46. AMITRIPTYLINE [Concomitant]
     Active Substance: AMITRIPTYLINE
     Dosage: UNK UNK, QD
     Route: 048
     Dates: start: 20190827
  47. TRASTUZUMAB. [Suspect]
     Active Substance: TRASTUZUMAB
     Indication: BREAST CANCER
     Dosage: 240 MILLIGRAM, Q3WK
     Route: 042
     Dates: start: 20190427, end: 20190427
  48. METRONIDAZOLE. [Concomitant]
     Active Substance: METRONIDAZOLE
     Indication: CHOLECYSTITIS ACUTE
     Route: 042
     Dates: start: 20200909, end: 20200914
  49. CEFTRIAXONE. [Concomitant]
     Active Substance: CEFTRIAXONE
     Indication: BILIARY SEPSIS
     Dosage: 250 MILLIGRAM, 0.5 DAY
     Route: 048
     Dates: start: 20200928, end: 20201012
  50. CIPROFLOXACIN. [Concomitant]
     Active Substance: CIPROFLOXACIN
     Indication: CHOLECYSTITIS ACUTE
     Dosage: 500 MILLIGRAM, 0.5 DAY
     Route: 048
     Dates: start: 20200909, end: 20200916
  51. TEICOPLANIN [Concomitant]
     Active Substance: TEICOPLANIN
     Dosage: UNK
     Route: 042
     Dates: start: 20201028
  52. XELODA [Concomitant]
     Active Substance: CAPECITABINE
     Dosage: 1300 MILLIGRAM
     Route: 048
     Dates: start: 20201020
  53. TEICOPLANIN [Concomitant]
     Active Substance: TEICOPLANIN
     Indication: PYREXIA
     Dosage: UNK
     Route: 042
     Dates: start: 20200724, end: 20200728
  54. CEFTRIAXONE. [Concomitant]
     Active Substance: CEFTRIAXONE
     Dosage: 250 MILLIGRAM, 0.5 DAY
     Route: 048
     Dates: start: 20200925, end: 20200927
  55. CEFUROXIME. [Concomitant]
     Active Substance: CEFUROXIME
     Dosage: 250 MILLIGRAM, 0.5 DAY
     Route: 048
     Dates: start: 20201028

REACTIONS (2)
  - Neuropathy peripheral [Not Recovered/Not Resolved]
  - Coagulopathy [Recovering/Resolving]

NARRATIVE: CASE EVENT DATE: 20190716
